FAERS Safety Report 6145859-5 (Version None)
Quarter: 2009Q2

REPORT INFORMATION
  Report Type: 
  Country: None (occurrence: None)
  Receive Date: 20090403
  Receipt Date: 20090317
  Transmission Date: 20091009
  Serious: No
  Sender: FDA-Public Use
  Company Number: 2009-193467-NL

PATIENT
  Age: 45 Year
  Sex: Female

DRUGS (3)
  1. ROCURONIUM BROMIDE [Suspect]
     Indication: GENERAL ANAESTHESIA
     Dosage: UNK; INTRAVENOUS (NOS)
     Route: 042
     Dates: start: 20090310, end: 20090310
  2. FENTANYL [Concomitant]
  3. PROPOFOL [Concomitant]

REACTIONS (4)
  - GENERALISED ERYTHEMA [None]
  - HYPOTENSION [None]
  - TACHYCARDIA [None]
  - TRYPTASE INCREASED [None]
